FAERS Safety Report 24325684 (Version 1)
Quarter: 2024Q3

REPORT INFORMATION
  Report Type: Spontaneous
  Country: US (occurrence: US)
  Receive Date: 20240917
  Receipt Date: 20240917
  Transmission Date: 20241017
  Serious: Yes (Death, Other)
  Sender: AMGEN
  Company Number: US-AMGEN-USASP2024184230

PATIENT

DRUGS (1)
  1. RITUXIMAB [Suspect]
     Active Substance: RITUXIMAB
     Indication: Non-Hodgkin^s lymphoma unspecified histology indolent
     Dosage: 375 MILLIGRAM/SQ. METER, 4 WEEKLY DOSES
     Route: 065

REACTIONS (8)
  - Non-Hodgkin^s lymphoma unspecified histology indolent [Unknown]
  - Death [Fatal]
  - Therapy partial responder [Unknown]
  - Diarrhoea [Unknown]
  - Dysgeusia [Unknown]
  - Fatigue [Unknown]
  - Herpes zoster [Unknown]
  - Dry mouth [Unknown]
